FAERS Safety Report 10206707 (Version 3)
Quarter: 2014Q3

REPORT INFORMATION
  Report Type: Report from Study
  Country: JP (occurrence: JP)
  Receive Date: 20140530
  Receipt Date: 20140721
  Transmission Date: 20150326
  Serious: Yes (Other)
  Sender: FDA-Public Use
  Company Number: JP-B.I. PHARMACEUTICALS,INC./RIDGEFIELD-2014-BI-23006NB

PATIENT
  Age: 75 Year
  Sex: Male
  Weight: 66 kg

DRUGS (8)
  1. NIVADIP [Concomitant]
     Dosage: 8 MG
     Route: 048
  2. REBAMIPIDE [Concomitant]
     Active Substance: REBAMIPIDE
     Indication: PROPHYLAXIS
     Dosage: 200 MG
     Route: 048
  3. PRAZAXA [Suspect]
     Active Substance: DABIGATRAN ETEXILATE MESYLATE
     Indication: CEREBROVASCULAR ACCIDENT PROPHYLAXIS
     Dosage: 220 MG
     Route: 048
     Dates: start: 20120402
  4. ECARD [Concomitant]
     Active Substance: CANDESARTAN CILEXETIL\HYDROCHLOROTHIAZIDE
     Dosage: DOSE PER APPLICATION AND DAILY DOSE: 1DF
     Route: 048
  5. ARYTHMET [Concomitant]
     Dosage: 100 MG
     Route: 048
     Dates: end: 20130605
  6. OSPAIN [Concomitant]
     Active Substance: ETODOLAC
     Dosage: 400 MG
     Route: 048
  7. SENNOSIDE [Concomitant]
     Active Substance: SENNOSIDES
     Dosage: 24 MG
     Route: 048
     Dates: end: 20130527
  8. BEZATOL SR [Concomitant]
     Active Substance: BEZAFIBRATE
     Dosage: 200 MG
     Route: 048
     Dates: end: 20130605

REACTIONS (3)
  - Blood urine present [Not Recovered/Not Resolved]
  - Blood uric acid increased [Recovered/Resolved]
  - Intestinal obstruction [Recovered/Resolved]

NARRATIVE: CASE EVENT DATE: 20121018
